FAERS Safety Report 9407280 (Version 4)
Quarter: 2014Q2

REPORT INFORMATION
  Report Type: Report from Study
  Country: DE (occurrence: DE)
  Receive Date: 20130718
  Receipt Date: 20140515
  Transmission Date: 20141212
  Serious: Yes (Other)
  Sender: FDA-Public Use
  Company Number: DE-BAYER-2013-085259

PATIENT
  Age: 53 Year
  Sex: Female

DRUGS (3)
  1. BETAFERON [Suspect]
     Indication: MULTIPLE SCLEROSIS
     Dosage: 250 ?G, QOD
     Route: 058
     Dates: start: 20130616
  2. PARACETAMOL [Suspect]
     Dosage: 500 MG, QOD
  3. IBUPROFEN [Concomitant]

REACTIONS (3)
  - Gastrointestinal haemorrhage [None]
  - Liver function test abnormal [Recovered/Resolved]
  - Multiple sclerosis relapse [Unknown]
